FAERS Safety Report 5656162-1 (Version None)
Quarter: 2008Q1

REPORT INFORMATION
  Report Type: 
  Country: None (occurrence: None)
  Receive Date: 20080305
  Receipt Date: 20080220
  Transmission Date: 20080703
  Serious: Yes (Hospitalization)
  Sender: FDA-Public Use
  Company Number: 1-15802993

PATIENT
  Sex: Male
  Weight: 74.8435 kg

DRUGS (6)
  1. FENTANYL [Suspect]
     Indication: BACK PAIN
     Dosage: 50 MCG/HR EVERY 72 HR, TRANSDERMAL
     Route: 062
     Dates: start: 20071120, end: 20071130
  2. INSULIN PUMP [Concomitant]
  3. COREG [Concomitant]
  4. VYTORIN [Concomitant]
  5. PLAXIL (CLOPIDOGREL BISULFATE) [Concomitant]
  6. ACE INHIBITOR [Concomitant]

REACTIONS (13)
  - ABDOMINAL DISTENSION [None]
  - ABDOMINAL PAIN UPPER [None]
  - DIABETIC NEUROPATHY [None]
  - DIZZINESS [None]
  - FALL [None]
  - GASTRIC HYPOMOTILITY [None]
  - LOSS OF CONSCIOUSNESS [None]
  - MUSCLE ATROPHY [None]
  - MUSCULAR WEAKNESS [None]
  - NAUSEA [None]
  - ORTHOPNOEA [None]
  - PARAESTHESIA [None]
  - VERTIGO [None]
